FAERS Safety Report 5854065-0 (Version None)
Quarter: 2008Q3

REPORT INFORMATION
  Report Type: 
  Country: None (occurrence: None)
  Receive Date: 20080822
  Receipt Date: 20080815
  Transmission Date: 20090109
  Serious: Yes (Death)
  Sender: FDA-Public Use
  Company Number: US-AVENTIS-200815377US

PATIENT

DRUGS (2)
  1. SULFONAMIDES, UREA DERIVATIVES [Suspect]
  2. METFORMIN [Suspect]

REACTIONS (1)
  - DEATH [None]
